FAERS Safety Report 10250049 (Version 1)
Quarter: 2014Q2

REPORT INFORMATION
  Report Type: Spontaneous
  Country: US (occurrence: US)
  Receive Date: 20140620
  Receipt Date: 20140620
  Transmission Date: 20141212
  Serious: No
  Sender: FDA-Public Use
  Company Number: US-BRISTOL-MYERS SQUIBB COMPANY-20606166

PATIENT
  Age: 56 Year
  Sex: Male
  Weight: 115.64 kg

DRUGS (1)
  1. ELIQUIS [Suspect]
     Indication: CEREBROVASCULAR ACCIDENT PROPHYLAXIS
     Dosage: THERAPY STARTED: 3MONTHS AGO?STOPPED: FOR 1WEEK
     Dates: start: 2014, end: 2014

REACTIONS (4)
  - Arthralgia [Unknown]
  - Arthritis [Unknown]
  - Nail discolouration [Unknown]
  - Haemorrhage [Unknown]
